FAERS Safety Report 5141173-5 (Version None)
Quarter: 2006Q4

REPORT INFORMATION
  Report Type: 
  Country: None (occurrence: None)
  Receive Date: 20061026
  Receipt Date: 20061013
  Transmission Date: 20070319
  Serious: Yes (Hospitalization)
  Sender: FDA-Public Use
  Company Number: S06-FRA-01386-01

PATIENT
  Age: 73 Year
  Sex: Male

DRUGS (14)
  1. EBIXA (MEMANTINE) [Suspect]
     Indication: DEMENTIA ALZHEIMER'S TYPE
     Dosage: 10 MG BID PO
     Route: 048
     Dates: start: 20050301, end: 20060403
  2. CALCIPARINE [Concomitant]
  3. ARICEPT [Concomitant]
  4. SECTRAIL (ACEBUTOLOL HYDROCHLORIDE) [Concomitant]
  5. LASILIX (PERINDOPRIL) [Concomitant]
  6. IKOREL (NICORANDIL) [Concomitant]
  7. KARVEA HCT [Concomitant]
  8. ASPIRIN [Concomitant]
  9. POTASSIUM CHLORIDE [Concomitant]
  10. PRAVASTATIN [Concomitant]
  11. CORVASAL (MOLSIDOMINE) [Concomitant]
  12. DUPHALAC [Concomitant]
  13. OMEPRAZOLE [Concomitant]
  14. FORLAX (MACROGOL) [Concomitant]

REACTIONS (4)
  - ATRIAL FLUTTER [None]
  - DEPRESSED LEVEL OF CONSCIOUSNESS [None]
  - FALL [None]
  - OVERDOSE [None]
